FAERS Safety Report 7745567-0 (Version None)
Quarter: 2011Q3

REPORT INFORMATION
  Report Type: 
  Country: None (occurrence: None)
  Receive Date: 20110913
  Receipt Date: 20110901
  Transmission Date: 20111222
  Serious: Yes (Other)
  Sender: FDA-Public Use
  Company Number: DE-UCBSA-036952

PATIENT
  Age: 32 Year
  Sex: Female
  Weight: 68 kg

DRUGS (4)
  1. FOLIC ACID [Concomitant]
  2. KEPPRA [Suspect]
     Dosage: STRENGTH: 3000 MG
  3. KEPPRA [Suspect]
     Dosage: DOSAGE- 2X 2000MG
  4. LAMOTRIGINE [Concomitant]
     Dosage: DOSAGE-2X 300MG

REACTIONS (3)
  - ABORTION SPONTANEOUS [None]
  - PREGNANCY [None]
  - BENIGN NEOPLASM [None]
